FAERS Safety Report 4416767-2 (Version None)
Quarter: 2004Q3

REPORT INFORMATION
  Report Type: 
  Country: None (occurrence: None)
  Receive Date: 20040802
  Receipt Date: 20040720
  Transmission Date: 20050211
  Serious: Yes (Hospitalization)
  Sender: FDA-Public Use
  Company Number: HQWYE889914MAY04

PATIENT
  Age: 52 Year
  Sex: Female

DRUGS (1)
  1. RINADVIL (IBUPROFEN/PSEUDOEPHEDRINE, TABLET) [Suspect]
     Indication: RHINITIS
     Dosage: ORAL
     Route: 048
     Dates: start: 20040113, end: 20040216

REACTIONS (6)
  - ASTHENIA [None]
  - ATAXIA [None]
  - EOSINOPHILIA [None]
  - NERVOUS SYSTEM DISORDER [None]
  - PARAESTHESIA [None]
  - VASCULITIS [None]
